FAERS Safety Report 6203752-3 (Version None)
Quarter: 2009Q2

REPORT INFORMATION
  Report Type: 
  Country: None (occurrence: None)
  Receive Date: 20090526
  Receipt Date: 20090526
  Transmission Date: 20091009
  Serious: Yes (Other)
  Sender: FDA-Public Use
  Company Number: None

PATIENT
  Age: 59 Year
  Sex: Female
  Weight: 58.0604 kg

DRUGS (4)
  1. PROTONIX [Suspect]
     Indication: DYSPEPSIA
     Dosage: PO
     Route: 048
  2. PROTONIX [Suspect]
     Indication: GASTROOESOPHAGEAL REFLUX DISEASE
     Dosage: PO
     Route: 048
  3. NEXIUM [Suspect]
     Indication: DYSPEPSIA
     Dosage: PO
     Route: 048
  4. NEXIUM [Suspect]
     Indication: GASTROOESOPHAGEAL REFLUX DISEASE
     Dosage: PO
     Route: 048

REACTIONS (2)
  - GENITAL HERPES [None]
  - HEADACHE [None]
